FAERS Safety Report 12496597 (Version 2)
Quarter: 2017Q1

REPORT INFORMATION
  Report Type: Spontaneous
  Country: DE (occurrence: DE)
  Receive Date: 20160624
  Receipt Date: 20170109
  Transmission Date: 20170428
  Serious: Yes (Other)
  Sender: FDA-Public Use
  Company Number: DE-CIPLA LTD.-2016DE08078

PATIENT

DRUGS (5)
  1. LITHIUM. [Suspect]
     Active Substance: LITHIUM
     Indication: BIPOLAR DISORDER
     Dosage: UNK
     Route: 064
     Dates: start: 20070513, end: 20080225
  2. METOPROLOL. [Concomitant]
     Active Substance: METOPROLOL
     Indication: HYPERTENSION
     Dosage: UNK
     Route: 064
  3. AUGMENTIN [Concomitant]
     Active Substance: AMOXICILLIN\CLAVULANATE POTASSIUM
     Indication: BACTERIAL INFECTION
     Dosage: UNK
     Route: 064
     Dates: start: 20080224, end: 20080225
  4. QUETIAPINE. [Suspect]
     Active Substance: QUETIAPINE
     Indication: BIPOLAR DISORDER
     Dosage: 100 MG/TG
     Route: 064
     Dates: start: 20070513, end: 20080224
  5. LAMOTRIGINE. [Suspect]
     Active Substance: LAMOTRIGINE
     Indication: BIPOLAR DISORDER
     Dosage: 3 * 100 MG/TG
     Route: 064
     Dates: start: 20070513, end: 20080225

REACTIONS (12)
  - Amniorrhexis [Unknown]
  - Cardiac disorder [Unknown]
  - Gestational diabetes [Unknown]
  - C-reactive protein increased [Unknown]
  - Patent ductus arteriosus [Recovered/Resolved]
  - Hypotension [Recovered/Resolved]
  - Coarctation of the aorta [Unknown]
  - Hypotonia [Recovered/Resolved]
  - Exposure during pregnancy [Unknown]
  - Congenital aortic stenosis [Not Recovered/Not Resolved]
  - Bradycardia neonatal [Recovered/Resolved]
  - Neonatal respiratory distress syndrome [Recovered/Resolved]

NARRATIVE: CASE EVENT DATE: 20080225
